FAERS Safety Report 16071011 (Version 5)
Quarter: 2019Q3

REPORT INFORMATION
  Report Type: Spontaneous
  Country: DE (occurrence: DE)
  Receive Date: 20190314
  Receipt Date: 20190827
  Transmission Date: 20191004
  Serious: Yes (Life-Threatening)
  Sender: FDA-Public Use
  Company Number: DE-ROCHE-2278027

PATIENT
  Age: 50 Year
  Sex: Female
  Weight: 98 kg

DRUGS (17)
  1. OCREVUS [Suspect]
     Active Substance: OCRELIZUMAB
     Indication: SECONDARY PROGRESSIVE MULTIPLE SCLEROSIS
     Route: 042
     Dates: start: 20180419, end: 20180503
  2. SATIVEX [Concomitant]
     Active Substance: NABIXIMOLS
     Indication: MUSCLE SPASTICITY
     Route: 065
     Dates: start: 2017
  3. DEKRISTOL [Concomitant]
     Active Substance: CHOLECALCIFEROL
     Indication: VITAMIN D DEFICIENCY
     Route: 048
  4. L-THYROXIN [LEVOTHYROXINE] [Concomitant]
     Active Substance: LEVOTHYROXINE SODIUM
     Indication: HYPOTHYROIDISM
     Route: 048
  5. BACLOFEN. [Concomitant]
     Active Substance: BACLOFEN
     Indication: MUSCLE SPASTICITY
     Route: 048
  6. FAMPYRA [Concomitant]
     Active Substance: DALFAMPRIDINE
     Indication: GAIT DISTURBANCE
     Route: 048
     Dates: start: 2017
  7. L-THYROXIN [LEVOTHYROXINE] [Concomitant]
     Active Substance: LEVOTHYROXINE SODIUM
     Route: 065
  8. GEMCITABINE. [Concomitant]
     Active Substance: GEMCITABINE
     Route: 065
     Dates: start: 201804
  9. TARGIN [Concomitant]
     Active Substance: NALOXONE HYDROCHLORIDE\OXYCODONE HYDROCHLORIDE
     Indication: PAIN
     Route: 048
  10. PANTOZOL [Concomitant]
     Active Substance: PANTOPRAZOLE SODIUM
     Route: 048
  11. GEMCITABINE. [Concomitant]
     Active Substance: GEMCITABINE
     Dosage: FOR 6 CYCLES
     Route: 065
  12. GABAPENTIN. [Concomitant]
     Active Substance: GABAPENTIN
     Indication: PAIN
     Route: 048
  13. DANTAMACRIN [Concomitant]
     Active Substance: DANTROLENE SODIUM
     Route: 065
  14. DEXAMETHASON [DEXAMETHASONE] [Concomitant]
     Active Substance: DEXAMETHASONE
     Route: 065
     Dates: start: 201804
  15. GABAPENTIN. [Concomitant]
     Active Substance: GABAPENTIN
     Route: 048
  16. TAMSULOSIN [Concomitant]
     Active Substance: TAMSULOSIN
     Route: 048
  17. DANTAMACRIN [Concomitant]
     Active Substance: DANTROLENE SODIUM
     Indication: MUSCLE SPASTICITY
     Route: 048

REACTIONS (4)
  - Alopecia [Unknown]
  - Off label use [Unknown]
  - Intentional product use issue [Unknown]
  - Pancreatic carcinoma [Unknown]

NARRATIVE: CASE EVENT DATE: 201805
